FAERS Safety Report 6252273-0 (Version None)
Quarter: 2009Q3

REPORT INFORMATION
  Report Type: 
  Country: None (occurrence: None)
  Receive Date: 20090701
  Receipt Date: 20090626
  Transmission Date: 20100115
  Serious: Yes (Hospitalization)
  Sender: FDA-Public Use
  Company Number: US-RB-016566-09

PATIENT
  Age: 34 Year
  Sex: Female

DRUGS (1)
  1. SUBOXONE [Suspect]
     Route: 060
     Dates: start: 20090501

REACTIONS (7)
  - AGITATION [None]
  - DRY MOUTH [None]
  - GASTRIC DISORDER [None]
  - INFLUENZA [None]
  - LIMB INJURY [None]
  - PYREXIA [None]
  - VOMITING [None]
